FAERS Safety Report 8320530-X (Version None)
Quarter: 2012Q2

REPORT INFORMATION
  Report Type: 
  Country: None (occurrence: None)
  Receive Date: 20120430
  Receipt Date: 20120423
  Transmission Date: 20120825
  Serious: Yes (Other)
  Sender: FDA-Public Use
  Company Number: GB-PFIZER INC-2012099790

PATIENT
  Age: 59 Year
  Sex: Male

DRUGS (2)
  1. SILDENAFIL CITRATE [Suspect]
     Dosage: UNK
     Dates: start: 20110420
  2. SILDENAFIL CITRATE [Suspect]
     Dosage: UNK

REACTIONS (3)
  - MEAN ARTERIAL PRESSURE DECREASED [None]
  - HYPOTENSION [None]
  - CARDIAC OUTPUT DECREASED [None]
